FAERS Safety Report 7483166-9 (Version None)
Quarter: 2011Q2

REPORT INFORMATION
  Report Type: 
  Country: None (occurrence: None)
  Receive Date: 20110516
  Receipt Date: 20100510
  Transmission Date: 20111010
  Serious: No
  Sender: FDA-Public Use
  Company Number: US-AMGEN-TCS405599

PATIENT
  Age: 61 Year
  Sex: Female
  Weight: 66.6 kg

DRUGS (8)
  1. DIMETICONE, ACTIVATED [Concomitant]
  2. MELOXICAM [Concomitant]
     Dosage: UNK UNK, QD
     Route: 048
  3. ENBREL [Suspect]
     Indication: RHEUMATOID ARTHRITIS
     Dosage: 50 MG, QWK
     Route: 058
     Dates: start: 20100111
  4. MTV [Concomitant]
     Dosage: UNK UNK, QD
  5. LISINOPRIL [Concomitant]
     Dosage: UNK UNK, QD
     Route: 048
  6. FLUCONAZOLE [Concomitant]
     Dosage: UNK UNK, QD
  7. LORATADINE [Concomitant]
     Dosage: UNK UNK, QD
  8. CALCIUM WITH VITAMIN D [Concomitant]
     Dosage: UNK UNK, QD

REACTIONS (2)
  - PAIN IN EXTREMITY [None]
  - SINUSITIS [None]
